FAERS Safety Report 12352915 (Version 3)
Quarter: 2016Q3

REPORT INFORMATION
  Report Type: Spontaneous
  Country: CH (occurrence: CH)
  Receive Date: 20160510
  Receipt Date: 20160808
  Transmission Date: 20161109
  Serious: Yes (Other)
  Sender: FDA-Public Use
  Company Number: CH-PFIZER INC-2016250588

PATIENT
  Age: 38 Year
  Sex: Male
  Weight: 65 kg

DRUGS (5)
  1. CHAMPIX [Suspect]
     Active Substance: VARENICLINE TARTRATE
     Dosage: 2 MG, DAILY, FROM DAY 8
     Route: 048
     Dates: end: 20160430
  2. CHAMPIX [Suspect]
     Active Substance: VARENICLINE TARTRATE
     Indication: SMOKING CESSATION THERAPY
     Dosage: 0.5 MG, DAILY, ON DAY 1 - 3
     Route: 048
  3. CHAMPIX [Suspect]
     Active Substance: VARENICLINE TARTRATE
     Dosage: 1 MG, DAILY, ON DAY 4 - 7
     Route: 048
  4. CHAMPIX [Suspect]
     Active Substance: VARENICLINE TARTRATE
     Dosage: 0.5 MG, 2X/DAY
     Route: 048
  5. CHAMPIX [Suspect]
     Active Substance: VARENICLINE TARTRATE
     Dosage: 1.5 MG FOR 2 DAYS
     Route: 048

REACTIONS (8)
  - Tinnitus [Recovered/Resolved]
  - Bradyphrenia [Recovered/Resolved]
  - Daydreaming [Recovered/Resolved]
  - Feeling abnormal [Recovered/Resolved]
  - Slow response to stimuli [Recovered/Resolved]
  - Dizziness [Recovered/Resolved]
  - Disturbance in attention [Recovered/Resolved]
  - Impaired driving ability [Recovered/Resolved]

NARRATIVE: CASE EVENT DATE: 20160429
